FAERS Safety Report 13481040 (Version 1)
Quarter: 2017Q2

REPORT INFORMATION
  Report Type: Spontaneous
  Country: US (occurrence: US)
  Receive Date: 20170425
  Receipt Date: 20170425
  Transmission Date: 20170830
  Serious: No
  Sender: FDA-Public Use
  Company Number: US-009507513-1704USA004036

PATIENT
  Sex: Female

DRUGS (1)
  1. NUVARING [Suspect]
     Active Substance: ETHINYL ESTRADIOL\ETONOGESTREL
     Dosage: IN PLACE CONTINUOUSLY FOR THREE WEEKS, FOLLOWED BY A ONE-WEEK RING FREE
     Route: 067

REACTIONS (5)
  - Device expulsion [Unknown]
  - No adverse event [Unknown]
  - Accidental underdose [Unknown]
  - Product quality issue [Unknown]
  - Drug dose omission [Unknown]
